FAERS Safety Report 8276339-9 (Version None)
Quarter: 2012Q2

REPORT INFORMATION
  Report Type: 
  Country: None (occurrence: None)
  Receive Date: 20120412
  Receipt Date: 20120410
  Transmission Date: 20120825
  Serious: Yes (Life-Threatening)
  Sender: FDA-Public Use
  Company Number: RU-BAYER-2012-020267

PATIENT
  Age: 44 Year
  Sex: Female

DRUGS (1)
  1. ULTRAVIST 150 [Suspect]
     Indication: PRODUCT USED FOR UNKNOWN INDICATION
     Dosage: 50 ML, ONCE
     Route: 042
     Dates: start: 20120201, end: 20120201

REACTIONS (8)
  - FACE OEDEMA [None]
  - VOMITING [None]
  - ERYTHEMA [None]
  - BLOOD PRESSURE DECREASED [None]
  - ANXIETY [None]
  - PSYCHOMOTOR HYPERACTIVITY [None]
  - TACHYCARDIA [None]
  - NAUSEA [None]
